FAERS Safety Report 17067361 (Version 1)
Quarter: 2019Q4

REPORT INFORMATION
  Report Type: Report from Study
  Country: GB (occurrence: GB)
  Receive Date: 20191122
  Receipt Date: 20191122
  Transmission Date: 20200122
  Serious: Yes (Hospitalization, Other)
  Sender: FDA-Public Use
  Company Number: GB-SHIRE-GB201938908

PATIENT

DRUGS (1)
  1. FIRAZYR [Suspect]
     Active Substance: ICATIBANT ACETATE
     Indication: ANGIOEDEMA
     Dosage: UNK, UNKNOWN, 30MG PRE-FILLED SYRINGE, ACUTE
     Route: 065

REACTIONS (2)
  - Angioedema [Unknown]
  - Drug ineffective [Unknown]
